FAERS Safety Report 7303399-1 (Version None)
Quarter: 2011Q1

REPORT INFORMATION
  Report Type: 
  Country: None (occurrence: None)
  Receive Date: 20110221
  Receipt Date: 20110207
  Transmission Date: 20110831
  Serious: Yes (Hospitalization, Other)
  Sender: FDA-Public Use
  Company Number: US-ELI_LILLY_AND_COMPANY-US201102002025

PATIENT
  Sex: Female

DRUGS (6)
  1. FORTEO [Suspect]
     Indication: OSTEOPOROSIS
     Dosage: 20 UG, DAILY (1/D)
     Dates: start: 20100101, end: 20110127
  2. DIGOXIN [Concomitant]
  3. LOPRESSOR [Concomitant]
  4. WARFARIN SODIUM [Concomitant]
  5. SIMVASTATIN [Concomitant]
  6. COZAAR [Concomitant]

REACTIONS (10)
  - GAIT DISTURBANCE [None]
  - DYSARTHRIA [None]
  - DISORIENTATION [None]
  - FEELING ABNORMAL [None]
  - MEMORY IMPAIRMENT [None]
  - ASTHENIA [None]
  - FALL [None]
  - DIZZINESS [None]
  - BLOOD CALCIUM INCREASED [None]
  - LABORATORY TEST ABNORMAL [None]
